FAERS Safety Report 8189999-8 (Version None)
Quarter: 2012Q1

REPORT INFORMATION
  Report Type: 
  Country: None (occurrence: None)
  Receive Date: 20120307
  Receipt Date: 20120227
  Transmission Date: 20120608
  Serious: Yes (Hospitalization, Other)
  Sender: FDA-Public Use
  Company Number: US-ASTRAZENECA-2011SE76791

PATIENT
  Age: 25069 Day
  Sex: Female

DRUGS (30)
  1. ASPIRIN [Concomitant]
     Route: 048
     Dates: start: 20110824
  2. MECLIZINE [Concomitant]
     Indication: DIZZINESS
     Route: 048
  3. CLOPIDOGREL [Concomitant]
     Indication: ANTIPLATELET THERAPY
     Dates: start: 20090912
  4. PLAVIX [Suspect]
     Indication: CORONARY ARTERY DISEASE
     Route: 048
     Dates: start: 20110825, end: 20111101
  5. SIMVASTATIN [Concomitant]
     Indication: HYPERLIPIDAEMIA
     Route: 048
  6. AMLODIPINE [Concomitant]
     Indication: HYPERTENSION
     Route: 048
     Dates: end: 20110831
  7. HYDROCODONE BITARTRATE AND ACETAMINOPHEN [Concomitant]
     Indication: PAIN
     Dosage: 5/500 AS NEEDED
     Route: 048
     Dates: end: 20111207
  8. CINNAMON+CHROM [Concomitant]
     Indication: VITAMIN SUPPLEMENTATION
     Route: 048
     Dates: end: 20111207
  9. MULTIPLE VITAMIN [Concomitant]
     Indication: VITAMIN SUPPLEMENTATION
     Route: 048
     Dates: end: 20111207
  10. CRANBERRY FRUIT WITH VITAMIN C [Concomitant]
     Indication: VITAMIN SUPPLEMENTATION
     Route: 048
  11. TYLENOL-500 [Concomitant]
     Indication: PAIN
     Route: 048
  12. FLAX OIL [Concomitant]
     Indication: HYPERLIPIDAEMIA
     Route: 048
     Dates: end: 20111207
  13. VITAMIN B-12 [Concomitant]
     Indication: VITAMIN SUPPLEMENTATION
     Route: 048
  14. FISH OIL [Concomitant]
     Indication: HYPERLIPIDAEMIA
     Route: 048
     Dates: end: 20111207
  15. PROMETHAZINE [Concomitant]
     Indication: NAUSEA
     Route: 048
  16. AMLODIPINE [Concomitant]
     Route: 048
     Dates: start: 20110831, end: 20111207
  17. PLAVIX [Suspect]
     Route: 048
     Dates: start: 20111117, end: 20111207
  18. METOPROLOL TARTRATE [Concomitant]
     Indication: MYOCARDIAL INFARCTION
     Route: 048
     Dates: end: 20111207
  19. ALLOPURINOL [Concomitant]
     Indication: BLOOD URIC ACID INCREASED
     Route: 048
  20. ACAI [Concomitant]
     Indication: VITAMIN SUPPLEMENTATION
     Route: 048
     Dates: end: 20111207
  21. FUROSEMIDE [Concomitant]
     Indication: HYPERTENSION
     Route: 048
     Dates: end: 20111207
  22. ADVAIR DISKUS 100/50 [Concomitant]
     Indication: ASTHMA
     Dosage: 100/50 ONE PUFF TWICE DAILY
     Route: 055
  23. JANUVIA [Concomitant]
     Indication: TYPE 2 DIABETES MELLITUS
     Route: 048
     Dates: end: 20111207
  24. AMILORIDE HCL AND HYDROCHLOROTHIAZIDE [Concomitant]
     Indication: HYPERTENSION
     Dosage: 5/50 EVERY MORNING
     Route: 048
     Dates: end: 20111207
  25. VITAMIN D [Concomitant]
     Indication: VITAMIN SUPPLEMENTATION
     Route: 048
     Dates: end: 20111207
  26. CALCIUM+VITAMIN D [Concomitant]
     Indication: VITAMIN SUPPLEMENTATION
     Route: 048
     Dates: end: 20111207
  27. LOSARTAN POTASSIUM [Concomitant]
     Indication: HYPERTENSION
     Route: 048
     Dates: end: 20111207
  28. IBUPROFEN [Concomitant]
     Indication: PAIN
     Dosage: AS NEEDED
     Route: 048
  29. VESICARE [Concomitant]
     Indication: BLADDER DISORDER
     Route: 048
  30. ENALAPRIL MALEATE [Concomitant]
     Indication: HYPERTENSION
     Route: 048
     Dates: end: 20111207

REACTIONS (3)
  - ATRIOVENTRICULAR BLOCK SECOND DEGREE [None]
  - RENAL FAILURE ACUTE [None]
  - DEHYDRATION [None]
